FAERS Safety Report 5880327-7 (Version None)
Quarter: 2008Q3

REPORT INFORMATION
  Report Type: 
  Country: None (occurrence: None)
  Receive Date: 20080912
  Receipt Date: 20080908
  Transmission Date: 20090109
  Serious: Yes (Hospitalization)
  Sender: FDA-Public Use
  Company Number: US-B.I. PHARMACEUTICALS,INC./RIDGEFIELD-2008-BP-13753BP

PATIENT
  Age: 52 Year
  Sex: Female

DRUGS (3)
  1. ALUPENT [Suspect]
     Indication: ASTHMA
     Dosage: 1 TO 2 INHALATIONS AS NEEDED
     Route: 055
  2. ALLERGY SHOTS [Concomitant]
     Indication: HYPERSENSITIVITY
  3. THYROID TAB [Concomitant]
     Indication: HYPOTHYROIDISM
     Route: 048

REACTIONS (3)
  - BRONCHITIS [None]
  - PLEURISY [None]
  - PNEUMONIA [None]
